FAERS Safety Report 8737435 (Version 3)
Quarter: 2013Q3

REPORT INFORMATION
  Report Type: Spontaneous
  Country: US (occurrence: US)
  Receive Date: 20120822
  Receipt Date: 20130709
  Transmission Date: 20140515
  Serious: Yes (Other)
  Sender: FDA-Public Use
  Company Number: US-UCBSA-063860

PATIENT
  Age: 34 Year
  Sex: Female

DRUGS (1)
  1. CIMZIA [Suspect]
     Indication: CROHN^S DISEASE
     Dosage: STRENGHT: 200 MG KIT (2 PFS/BOX)
     Route: 058
     Dates: start: 20120322, end: 20121111

REACTIONS (3)
  - Herpes zoster [Recovered/Resolved]
  - Alopecia [Unknown]
  - Exposure during pregnancy [Recovered/Resolved]
